FAERS Safety Report 17452771 (Version 1)
Quarter: 2020Q1

REPORT INFORMATION
  Report Type: Report from Study
  Country: ES (occurrence: ES)
  Receive Date: 20200224
  Receipt Date: 20200224
  Transmission Date: 20200409
  Serious: Yes (Hospitalization, Other)
  Sender: FDA-Public Use
  Company Number: ES-MYLANLABS-2020M1018773

PATIENT
  Age: 38 Year
  Sex: Male

DRUGS (6)
  1. ENANTYUM [Concomitant]
     Active Substance: DEXKETOPROFEN TROMETAMOL
     Dosage: 25 MG 1 COMPRIMIDO CADA 8 HORAS
     Route: 048
  2. PARACETAMOL/TRAMADOL [Suspect]
     Active Substance: ACETAMINOPHEN\TRAMADOL
     Indication: BACK PAIN
     Dosage: 37,5 MG / 325 MG 1 COMPRIMIDO ORAL CADA 8 HORAS
     Route: 048
     Dates: start: 20190920, end: 20191001
  3. DIAZEPAM. [Concomitant]
     Active Substance: DIAZEPAM
     Dosage: 10 MG 1 COMPRIMIDO CADA 8 HORAS V?A ORAL
     Route: 048
  4. PAROXETINA                         /00830801/ [Concomitant]
     Active Substance: PAROXETINE
     Dosage: 20 MG 1 COMPRIMIDO CADA 24 HORAS V?A ORAL
     Route: 048
  5. DISULFIRAM. [Concomitant]
     Active Substance: DISULFIRAM
     Dosage: 250 MG 1 COMPRIMIDO CADA 24 ORAS V?A ORAL
     Route: 048
  6. TRAMADOL. [Suspect]
     Active Substance: TRAMADOL
     Indication: BACK PAIN
     Dosage: 300 MG A 21 ML/HORA DIARIO IV (INYECTABLE)
     Route: 042
     Dates: start: 20191001, end: 20191004

REACTIONS (3)
  - Genital paraesthesia [Recovered/Resolved]
  - Constipation [Recovered/Resolved]
  - Urinary incontinence [Recovering/Resolving]

NARRATIVE: CASE EVENT DATE: 201909
